FAERS Safety Report 8589167-1 (Version None)
Quarter: 2012Q3

REPORT INFORMATION
  Report Type: 
  Country: None (occurrence: None)
  Receive Date: 20120813
  Receipt Date: 20120806
  Transmission Date: 20120928
  Serious: Yes (Hospitalization)
  Sender: FDA-Public Use
  Company Number: ES-SANOFI-AVENTIS-2012SA056014

PATIENT
  Age: 77 Year
  Sex: Female

DRUGS (6)
  1. SEROQUEL [Suspect]
     Route: 048
     Dates: start: 20120719, end: 20120722
  2. NOLOTIL [Suspect]
     Route: 048
     Dates: start: 20120711, end: 20120722
  3. RIFALDIN [Suspect]
     Indication: INFECTION
     Route: 042
     Dates: start: 20120719, end: 20120722
  4. LEVOFLOXACIN [Suspect]
     Indication: INFECTION
     Route: 042
     Dates: start: 20120719, end: 20120722
  5. TORADOL [Suspect]
     Route: 042
     Dates: start: 20120719
  6. OMEPRAZOLE [Suspect]
     Indication: PROPHYLAXIS
     Route: 048
     Dates: start: 20120601, end: 20120722

REACTIONS (1)
  - STATUS EPILEPTICUS [None]
